FAERS Safety Report 19493122 (Version 4)
Quarter: 2023Q4

REPORT INFORMATION
  Report Type: Report from Study
  Country: AT (occurrence: AT)
  Receive Date: 20210705
  Receipt Date: 20231207
  Transmission Date: 20240110
  Serious: Yes (Hospitalization, Other)
  Sender: FDA-Public Use
  Company Number: AT-CELLTRION HEALTHCARE HUNGARY KFT-2021AT005284

PATIENT
  Age: 62 Year
  Sex: Female
  Weight: 80 kg

DRUGS (60)
  1. TRASTUZUMAB [Suspect]
     Active Substance: TRASTUZUMAB
     Indication: Breast cancer metastatic
     Dosage: 1440 MILLIGRAM, QWK/ 480 MG, TIW(FREQUENCY: Q3W - EVERY 3 WEEKS MOST RECENT DOSE PRIOR TO THE EVENT:
     Route: 042
     Dates: start: 20170306
  2. PERTUZUMAB [Suspect]
     Active Substance: PERTUZUMAB
     Indication: Breast cancer metastatic
     Dosage: 420 MILLIGRAM, Q3WK/ 420 MG, TIW (Q3W - EVERY 3 WEEKS)(DOSE ON: 21/NOV/2017)
     Route: 042
     Dates: start: 20170306
  3. LAPATINIB [Suspect]
     Active Substance: LAPATINIB
     Indication: Breast cancer metastatic
     Dosage: 1000 MILLIGRAM, QD
     Route: 048
     Dates: start: 20181227, end: 20190116
  4. LAPATINIB [Suspect]
     Active Substance: LAPATINIB
     Dosage: 750 MILLIGRAM, QD
     Route: 048
     Dates: start: 20190116
  5. VINORELBINE [Suspect]
     Active Substance: VINORELBINE TARTRATE
     Indication: Breast cancer metastatic
     Dosage: 50 MILLIGRAM/ ONE DOSE ON 30/MAY/2017, 27/JUN/2017
     Route: 048
     Dates: start: 20170306
  6. CAPECITABINE [Suspect]
     Active Substance: CAPECITABINE
     Indication: Breast cancer metastatic
     Dosage: 3500 MILLIGRAM, QD/ 3500 MG, QD (DOSE ON: 04/SEP/2018, 10/SEP/2018, 27/MAY/2019)
     Route: 048
     Dates: start: 20180904, end: 20180910
  7. CAPECITABINE [Suspect]
     Active Substance: CAPECITABINE
     Dosage: 3500 MILLIGRAM, QD/ 3500 MG, QD (FREQUENCY: O.D. - ONCE DAILYMOST RECENT DOSE PRIOR TO THE EVENT: 17
     Route: 048
     Dates: start: 20180904
  8. ADO-TRASTUZUMAB EMTANSINE [Suspect]
     Active Substance: ADO-TRASTUZUMAB EMTANSINE
     Indication: Breast cancer metastatic
     Dosage: 3.3 MILLIGRAM/SQ. METER, Q3WK/ 3.3 MG/M2 EVERY 3 WEEKS (MOST RECENT DOSE PRIOR TO THE EVENT)
     Route: 042
     Dates: start: 20180515
  9. ADO-TRASTUZUMAB EMTANSINE [Suspect]
     Active Substance: ADO-TRASTUZUMAB EMTANSINE
     Dosage: 3.6 MILLIGRAM/SQ. METER, Q3WK/ 3.6 MG/M2 EVERY 3 WEEKS (DOSE ON 24/APR/2018, 15/MAY/2018)
     Route: 042
     Dates: start: 20171212
  10. ADO-TRASTUZUMAB EMTANSINE [Suspect]
     Active Substance: ADO-TRASTUZUMAB EMTANSINE
     Dosage: 3.6 MILLIGRAM/SQ. METER, Q3WK/ 3.6 MG/M2, TIW (FREQUENCY: Q3W - EVERY 3 WEEKSMOST RECENT DOSE PRIOR
     Route: 042
     Dates: start: 20171212
  11. NAVELBINE [Suspect]
     Active Substance: VINORELBINE TARTRATE
     Indication: HER2 positive breast cancer
     Dosage: 50 MILLIGRAM/ 50 MG (FREQUENCY: OTHERMOST RECENT DOSE PRIOR TO THE EVENT: 27/JUN/2017)
     Route: 048
     Dates: start: 20170306
  12. HERCEPTIN [Suspect]
     Active Substance: TRASTUZUMAB
     Indication: HER2 positive breast cancer
     Dosage: 480 MILLIGRAM, Q3WK/ 480 MILLIGRAMS EVERY 3 WEEKS; DOSE ON 21/NOV/2017, 04/SEP/2018, 23/OCT/2018, 27
     Route: 042
     Dates: start: 20170306
  13. LACTULOSE [Concomitant]
     Active Substance: LACTULOSE
     Dosage: UNK
     Dates: start: 20171212, end: 20190907
  14. ACETAMINOPHEN [Concomitant]
     Active Substance: ACETAMINOPHEN
     Dosage: UNK
  15. VENLAFAXINE HYDROCHLORIDE [Concomitant]
     Active Substance: VENLAFAXINE HYDROCHLORIDE
     Dosage: ONGOING = NOT CHECKED
     Dates: start: 20190315, end: 20190907
  16. PARACODIN [DIHYDROCODEINE] [Concomitant]
     Indication: Dyspnoea
     Dosage: UNK
     Dates: start: 20190509
  17. PARACODIN [DIHYDROCODEINE] [Concomitant]
     Dosage: UNK
     Dates: start: 20190510
  18. DIAMOX SEQUELS [Concomitant]
     Active Substance: ACETAZOLAMIDE
     Dosage: UNK
  19. SUCRALFATE [Concomitant]
     Active Substance: SUCRALFATE
     Dosage: LAST ADMINISTRATION: 07-SEP-2019
  20. BUPRENORPHINE [Concomitant]
     Active Substance: BUPRENORPHINE
     Dosage: UNK
  21. CITRIC ACID MONOHYDRATE\POTASSIUM BICARBONATE\POTASSIUM CITRATE [Concomitant]
     Active Substance: CITRIC ACID MONOHYDRATE\POTASSIUM BICARBONATE\POTASSIUM CITRATE
     Dosage: UNK
  22. DOXYCYCLINE [Concomitant]
     Active Substance: DOXYCYCLINE
     Indication: Respiratory tract infection
     Dosage: ONGOING = NOT CHECKED
     Dates: start: 20190502, end: 20190509
  23. ZYRTEC [Concomitant]
     Active Substance: CETIRIZINE HYDROCHLORIDE
     Dosage: UNK
  24. ZOLPIDEM [Concomitant]
     Active Substance: ZOLPIDEM TARTRATE
     Dosage: UNK
     Dates: start: 20190215, end: 20190315
  25. AUGMENTIN [Concomitant]
     Active Substance: AMOXICILLIN\CLAVULANATE POTASSIUM
     Indication: Respiratory tract infection
     Dosage: ONGOING = NOT CHECKED
     Dates: start: 20190509, end: 20190516
  26. EMEND [Concomitant]
     Active Substance: APREPITANT
     Dosage: UNK
     Dates: start: 20180127, end: 20181013
  27. EMEND [Concomitant]
     Active Substance: APREPITANT
     Dosage: UNK
     Dates: start: 20180128, end: 20181014
  28. EMEND [Concomitant]
     Active Substance: APREPITANT
     Dosage: UNK
     Dates: start: 20180129, end: 20181015
  29. LORAZEPAM [Concomitant]
     Active Substance: LORAZEPAM
     Dosage: UNK
     Dates: start: 20190226
  30. LYRICA [Concomitant]
     Active Substance: PREGABALIN
     Indication: Back pain
     Dosage: UNK/ LAST ADMINISTRATION: 26-FEB-2019
     Dates: start: 20181227
  31. METOCLOPRAMIDE HYDROCHLORIDE [Concomitant]
     Active Substance: METOCLOPRAMIDE HYDROCHLORIDE
     Dosage: UNK
     Dates: start: 20171212, end: 20190907
  32. DEXAMETHASONE [Concomitant]
     Active Substance: DEXAMETHASONE
     Dosage: UNK
     Dates: start: 20170829, end: 20181013
  33. NOVALGIN (METAMIZOLE SODIUM) [Concomitant]
     Active Substance: METAMIZOLE SODIUM
     Indication: Hepatic pain
     Dosage: UNK
     Dates: start: 20190315, end: 20190907
  34. NOVALGIN (METAMIZOLE SODIUM) [Concomitant]
     Active Substance: METAMIZOLE SODIUM
     Dosage: UNK
     Dates: start: 20190509, end: 20190509
  35. NOVALGIN (METAMIZOLE SODIUM) [Concomitant]
     Active Substance: METAMIZOLE SODIUM
     Dosage: UNK
     Dates: start: 20170327, end: 20191003
  36. NOVALGIN (METAMIZOLE SODIUM) [Concomitant]
     Active Substance: METAMIZOLE SODIUM
     Dosage: UNK
     Dates: start: 20190315, end: 20190907
  37. RANITIDINE HYDROCHLORIDE [Concomitant]
     Active Substance: RANITIDINE HYDROCHLORIDE
     Dosage: UNK
  38. MANNIT [MANNITOL] [Concomitant]
     Dosage: UNK
  39. PANTOPRAZOLE SODIUM [Concomitant]
     Active Substance: PANTOPRAZOLE SODIUM
     Dosage: ONGOING = CHECKED
     Dates: start: 20170302
  40. BUPRENORPHINE HYDROCHLORIDE [Concomitant]
     Active Substance: BUPRENORPHINE HYDROCHLORIDE
     Dosage: UNK
     Dates: start: 20190908
  41. LASIX [Concomitant]
     Active Substance: FUROSEMIDE
     Dosage: UNK
     Dates: end: 20190907
  42. BAMBUTEROL HYDROCHLORIDE [Concomitant]
     Active Substance: BAMBUTEROL HYDROCHLORIDE
     Dosage: UNK
  43. DIOSMIN\HESPERIDIN [Concomitant]
     Active Substance: DIOSMIN\HESPERIDIN
     Dosage: UNK
     Dates: end: 20190907
  44. DEXAMETHASONE [Concomitant]
     Active Substance: DEXAMETHASONE
     Dosage: UNK
     Dates: start: 20190215, end: 20190907
  45. DEXAMETHASONE [Concomitant]
     Active Substance: DEXAMETHASONE
     Dosage: UNK
     Dates: start: 20190215, end: 20190907
  46. KYTRIL [Concomitant]
     Active Substance: GRANISETRON HYDROCHLORIDE
     Dosage: UNK
     Dates: start: 20171212, end: 20181013
  47. LAPATINIB DITOSYLATE [Concomitant]
     Active Substance: LAPATINIB DITOSYLATE
     Dosage: 750 MG, QD
     Route: 048
     Dates: start: 20190116, end: 20190206
  48. LAPATINIB DITOSYLATE [Concomitant]
     Active Substance: LAPATINIB DITOSYLATE
     Dosage: 1000 MILLIGRAM, QD
     Route: 048
     Dates: start: 20181227, end: 20190116
  49. MORPHINE HYDROCHLORIDE [Concomitant]
     Active Substance: MORPHINE HYDROCHLORIDE
     Dosage: UNK
  50. MIRTAZAPINE [Concomitant]
     Active Substance: MIRTAZAPINE
     Dosage: ONGOING = CHECKED
     Dates: start: 20190315
  51. MIRTAZAPINE [Concomitant]
     Active Substance: MIRTAZAPINE
     Dosage: ONGOING = NOT CHECKED
     Dates: start: 20190315, end: 20190907
  52. PREDNISOLONE SODIUM SUCCINATE [Concomitant]
     Active Substance: PREDNISOLONE SODIUM SUCCINATE
     Dosage: UNK
  53. DIMETHINDENE [Concomitant]
     Active Substance: DIMETHINDENE
     Dosage: UNK
  54. CORTISONE ACETATE [Concomitant]
     Active Substance: CORTISONE ACETATE
     Indication: Respiratory tract infection
     Dosage: ONGOING = NOT CHECKED
     Dates: start: 20190615, end: 20190615
  55. HYDROMORPHONE HYDROCHLORIDE [Concomitant]
     Active Substance: HYDROMORPHONE HYDROCHLORIDE
     Indication: Back pain
     Dosage: UNK
     Dates: start: 20180628, end: 20190226
  56. HYDROMORPHONE HYDROCHLORIDE [Concomitant]
     Active Substance: HYDROMORPHONE HYDROCHLORIDE
     Dosage: UNK
     Dates: start: 20181227, end: 20190907
  57. TRAZODONE HYDROCHLORIDE [Concomitant]
     Active Substance: TRAZODONE HYDROCHLORIDE
     Dosage: UNK
     Dates: start: 20181215, end: 20190226
  58. EDOXABAN TOSYLATE [Concomitant]
     Active Substance: EDOXABAN TOSYLATE
     Indication: Pulmonary embolism
     Dosage: ONGOING = NOT CHECKED
     Dates: start: 20190315, end: 20190907
  59. EDOXABAN TOSYLATE [Concomitant]
     Active Substance: EDOXABAN TOSYLATE
     Dosage: ONGOING = NOT CHECKED
     Dates: start: 20190315
  60. BISOPROLOL FUMARATE [Concomitant]
     Active Substance: BISOPROLOL FUMARATE
     Dosage: UNK
     Dates: end: 20190907

REACTIONS (11)
  - Angina pectoris [Recovered/Resolved]
  - Polyneuropathy [Not Recovered/Not Resolved]
  - Headache [Recovered/Resolved]
  - Headache [Unknown]
  - Vomiting [Recovered/Resolved]
  - Blindness [Recovered/Resolved with Sequelae]
  - Polyneuropathy [Recovered/Resolved]
  - Diarrhoea [Recovered/Resolved]
  - Headache [Recovered/Resolved]
  - Vertigo [Recovered/Resolved]
  - Vertigo [Not Recovered/Not Resolved]

NARRATIVE: CASE EVENT DATE: 20180904
